FAERS Safety Report 19173118 (Version 1)
Quarter: 2021Q2

REPORT INFORMATION
  Report Type: Spontaneous
  Country: US (occurrence: US)
  Receive Date: 20210422
  Receipt Date: 20210422
  Transmission Date: 20210717
  Serious: Yes (Death)
  Sender: FDA-Public Use
  Company Number: None

PATIENT
  Age: 78 Year
  Sex: Male
  Weight: 87.09 kg

DRUGS (10)
  1. DAURISMO [Suspect]
     Active Substance: GLASDEGIB
     Indication: ACUTE MYELOID LEUKAEMIA
     Route: 048
     Dates: start: 20210316, end: 20210422
  2. VITAMIN D3 COMPLETE [Concomitant]
  3. FLOXIN OTIC [Concomitant]
     Active Substance: OFLOXACIN
  4. METOPROLOL SUCCINATE ER [Concomitant]
     Active Substance: METOPROLOL SUCCINATE
  5. ASPIRIN. [Concomitant]
     Active Substance: ASPIRIN
  6. MICARDIS [Concomitant]
     Active Substance: TELMISARTAN
  7. TELMISARTAN. [Concomitant]
     Active Substance: TELMISARTAN
  8. SIMVASTATIN. [Concomitant]
     Active Substance: SIMVASTATIN
  9. ZOFRAN [Concomitant]
     Active Substance: ONDANSETRON HYDROCHLORIDE
  10. ALLOPURINOL. [Concomitant]
     Active Substance: ALLOPURINOL

REACTIONS (1)
  - Death [None]

NARRATIVE: CASE EVENT DATE: 20210422
